FAERS Safety Report 17028275 (Version 4)
Quarter: 2020Q1

REPORT INFORMATION
  Report Type: Report from Study
  Country: US (occurrence: US)
  Receive Date: 20191113
  Receipt Date: 20200330
  Transmission Date: 20200409
  Serious: Yes (Hospitalization)
  Sender: FDA-Public Use
  Company Number: US-ACTELION-A-US2016-142881

PATIENT
  Age: 53 Year
  Sex: Female
  Weight: 106.58 kg

DRUGS (20)
  1. PHENOBARBITAL. [Concomitant]
     Active Substance: PHENOBARBITAL
  2. TOPAMAX [Concomitant]
     Active Substance: TOPIRAMATE
  3. VELETRI [Suspect]
     Active Substance: EPOPROSTENOL
     Dosage: 35.2 NG/KG, PER MIN
     Route: 042
  4. ADEMPAS [Suspect]
     Active Substance: RIOCIGUAT
     Dosage: 1 MG, TID
     Route: 065
     Dates: start: 201704
  5. VELETRI [Suspect]
     Active Substance: EPOPROSTENOL
     Dosage: 9 NG/KG, PER MIN
     Route: 042
  6. VELETRI [Suspect]
     Active Substance: EPOPROSTENOL
     Dosage: 26 NG/KG, PER MIN
     Route: 042
     Dates: start: 20170125
  7. VELETRI [Suspect]
     Active Substance: EPOPROSTENOL
     Dosage: 32.75 NG/KG, PER MIN
     Route: 042
     Dates: start: 20170126
  8. VELETRI [Suspect]
     Active Substance: EPOPROSTENOL
     Dosage: 34 NG/KG, PER MIN
     Route: 042
     Dates: start: 20190802
  9. CYMBALTA [Concomitant]
     Active Substance: DULOXETINE HYDROCHLORIDE
  10. LOPRESSOR [Concomitant]
     Active Substance: METOPROLOL TARTRATE
  11. VISTARIL [Concomitant]
     Active Substance: HYDROXYZINE PAMOATE
  12. ADEMPAS [Suspect]
     Active Substance: RIOCIGUAT
     Indication: PRODUCT USED FOR UNKNOWN INDICATION
     Dosage: 2 MG, TID
     Route: 065
     Dates: start: 201704
  13. VELETRI [Suspect]
     Active Substance: EPOPROSTENOL
     Dosage: 7 NG/KG, PER MIN
     Route: 042
     Dates: start: 20160915
  14. VELETRI [Suspect]
     Active Substance: EPOPROSTENOL
     Dosage: 33 NG/KG, PER MIN
     Route: 042
  15. VELETRI [Suspect]
     Active Substance: EPOPROSTENOL
     Dosage: UNK
     Route: 042
     Dates: start: 20191220
  16. ADEMPAS [Suspect]
     Active Substance: RIOCIGUAT
     Dosage: 1.5 MG, TID
     Route: 065
     Dates: start: 201704
  17. LASIX [Concomitant]
     Active Substance: FUROSEMIDE
  18. VELETRI [Suspect]
     Active Substance: EPOPROSTENOL
     Indication: PULMONARY ARTERIAL HYPERTENSION
     Dosage: 29.5 NG/KG, PER MIN
     Route: 042
     Dates: start: 20170125
  19. VELETRI [Suspect]
     Active Substance: EPOPROSTENOL
     Dosage: 37.5 NG/KG, PER MIN
     Route: 042
  20. LETAIRIS [Suspect]
     Active Substance: AMBRISENTAN
     Indication: PULMONARY HYPERTENSION
     Dosage: 5 MG, QD
     Route: 048
     Dates: start: 20161216

REACTIONS (28)
  - Peripheral swelling [Unknown]
  - Pain [Unknown]
  - Upper-airway cough syndrome [Not Recovered/Not Resolved]
  - Gastrooesophageal reflux disease [Not Recovered/Not Resolved]
  - Cough [Not Recovered/Not Resolved]
  - Diarrhoea [Unknown]
  - Dizziness [Unknown]
  - Vomiting [Unknown]
  - Hospitalisation [Unknown]
  - Device dislocation [Not Recovered/Not Resolved]
  - Cardiac ablation [Recovered/Resolved]
  - Hypotension [Unknown]
  - Tinnitus [Not Recovered/Not Resolved]
  - Haemoptysis [Not Recovered/Not Resolved]
  - Headache [Unknown]
  - Emergency care [Unknown]
  - Catheter site pain [Not Recovered/Not Resolved]
  - Transfusion [Recovered/Resolved]
  - Myalgia [Unknown]
  - Flushing [Unknown]
  - Weight increased [Unknown]
  - Fluid retention [Recovering/Resolving]
  - Constipation [Unknown]
  - Arthralgia [Unknown]
  - Palpitations [Recovering/Resolving]
  - Nausea [Unknown]
  - Hot flush [Unknown]
  - Pain in jaw [Unknown]

NARRATIVE: CASE EVENT DATE: 20170411
